FAERS Safety Report 6407840-8 (Version None)
Quarter: 2009Q4

REPORT INFORMATION
  Report Type: 
  Country: None (occurrence: None)
  Receive Date: 20091015
  Receipt Date: 20091002
  Transmission Date: 20100525
  Serious: Yes (Hospitalization, Other)
  Sender: FDA-Public Use
  Company Number: 091007-0001058

PATIENT
  Age: 80 Year
  Sex: Male

DRUGS (9)
  1. INDOCIN [Suspect]
     Indication: GOUT
     Dates: start: 20090901
  2. REVLIMID [Suspect]
     Indication: LYMPHOPROLIFERATIVE DISORDER
     Dosage: QD; PO, 5 MG; QD; PO, 5 MG; QOD; PO, 5 MG; QOD; PO
     Route: 048
     Dates: start: 20060801, end: 20070201
  3. REVLIMID [Suspect]
     Indication: MYELODYSPLASTIC SYNDROME
     Dosage: QD; PO, 5 MG; QD; PO, 5 MG; QOD; PO, 5 MG; QOD; PO
     Route: 048
     Dates: start: 20060801, end: 20070201
  4. REVLIMID [Suspect]
     Indication: LYMPHOPROLIFERATIVE DISORDER
     Dosage: QD; PO, 5 MG; QD; PO, 5 MG; QOD; PO, 5 MG; QOD; PO
     Route: 048
     Dates: start: 20070501, end: 20080201
  5. REVLIMID [Suspect]
     Indication: MYELODYSPLASTIC SYNDROME
     Dosage: QD; PO, 5 MG; QD; PO, 5 MG; QOD; PO, 5 MG; QOD; PO
     Route: 048
     Dates: start: 20070501, end: 20080201
  6. REVLIMID [Suspect]
     Indication: LYMPHOPROLIFERATIVE DISORDER
     Dosage: QD; PO, 5 MG; QD; PO, 5 MG; QOD; PO, 5 MG; QOD; PO
     Route: 048
     Dates: start: 20080601, end: 20081001
  7. REVLIMID [Suspect]
     Indication: MYELODYSPLASTIC SYNDROME
     Dosage: QD; PO, 5 MG; QD; PO, 5 MG; QOD; PO, 5 MG; QOD; PO
     Route: 048
     Dates: start: 20080601, end: 20081001
  8. REVLIMID [Suspect]
     Indication: LYMPHOPROLIFERATIVE DISORDER
     Dosage: QD; PO, 5 MG; QD; PO, 5 MG; QOD; PO, 5 MG; QOD; PO
     Route: 048
     Dates: start: 20090101
  9. REVLIMID [Suspect]
     Indication: MYELODYSPLASTIC SYNDROME
     Dosage: QD; PO, 5 MG; QD; PO, 5 MG; QOD; PO, 5 MG; QOD; PO
     Route: 048
     Dates: start: 20090101

REACTIONS (2)
  - GASTRITIS [None]
  - GOUT [None]
